FAERS Safety Report 23481421 (Version 3)
Quarter: 2024Q2

REPORT INFORMATION
  Report Type: Spontaneous
  Country: FR (occurrence: FR)
  Receive Date: 20240205
  Receipt Date: 20240410
  Transmission Date: 20240716
  Serious: Yes (Other)
  Sender: FDA-Public Use
  Company Number: None

PATIENT
  Age: 71 Year
  Sex: Female
  Weight: 45 kg

DRUGS (16)
  1. CYCLOPHOSPHAMIDE [Suspect]
     Active Substance: CYCLOPHOSPHAMIDE
     Indication: B-cell lymphoma
     Dosage: 1070 MG, EVERY 3 WEEKS
     Route: 042
     Dates: start: 20201211, end: 20210515
  2. DOXORUBICIN [Suspect]
     Active Substance: DOXORUBICIN
     Indication: B-cell lymphoma
     Dosage: 70 MG, EVERY 3 WEEKS
     Route: 042
     Dates: start: 20201216, end: 20210515
  3. RETACRIT [Suspect]
     Active Substance: EPOETIN ALFA-EPBX
     Indication: Anaemia
     Dosage: 1 DF FOR EVERY WEEK (30000 UI/0,75 ML, PRE-FILLED SYRINGE)
     Route: 058
     Dates: start: 20201218
  4. FILGRASTIM [Suspect]
     Active Substance: FILGRASTIM
     Indication: Product used for unknown indication
     Dosage: 5 DOSAGE FORMS, 1 X CYCLICAL
     Route: 058
     Dates: start: 20201216
  5. ALLOPURINOL [Suspect]
     Active Substance: ALLOPURINOL
     Indication: Gout
     Dosage: 300 MG, ONCE A DAY
     Route: 048
     Dates: start: 20201203
  6. METHYLPREDNISOLONE [Suspect]
     Active Substance: METHYLPREDNISOLONE
     Indication: B-cell lymphoma
     Dosage: 40 MG, 1 X TOTAL
     Route: 037
     Dates: start: 20201216, end: 20201216
  7. METHOTREXATE [Suspect]
     Active Substance: METHOTREXATE
     Indication: B-cell lymphoma
     Dosage: 15 MG, 1 X TOTAL
     Route: 037
     Dates: start: 20201216, end: 20201216
  8. METHOTREXATE [Suspect]
     Active Substance: METHOTREXATE
     Dosage: 2090 MG, EVERY 3 WEEKS
     Route: 042
     Dates: start: 20210106, end: 20210515
  9. CYTARABINE [Suspect]
     Active Substance: CYTARABINE
     Indication: B-cell lymphoma
     Dosage: 30 MG, 1 X TOTAL
     Route: 037
     Dates: start: 20201216, end: 20201216
  10. RITUXIMAB [Suspect]
     Active Substance: RITUXIMAB
     Indication: Primary mediastinal large B-cell lymphoma
     Dosage: 500 MG, EVERY 3 WEEKS
     Route: 042
     Dates: start: 20201214, end: 20210515
  11. VALACYCLOVIR HYDROCHLORIDE [Suspect]
     Active Substance: VALACYCLOVIR HYDROCHLORIDE
     Indication: Antiviral prophylaxis
     Dosage: 1000 MG, ONCE A DAY
     Route: 048
  12. AMITRIPTYLINE HYDROCHLORIDE [Suspect]
     Active Substance: AMITRIPTYLINE HYDROCHLORIDE
     Indication: Occipital neuralgia
     Dosage: 10 DROP (1/12 MILLILITRE), QD
     Route: 048
  13. PREDNISOLONE [Suspect]
     Active Substance: PREDNISOLONE
     Indication: B-cell lymphoma
     Dosage: 360 MG, EVERY 21 DAYS
     Route: 048
     Dates: start: 20201211, end: 20210515
  14. VINCRISTINE SULFATE [Suspect]
     Active Substance: VINCRISTINE SULFATE
     Indication: B-cell lymphoma
     Dosage: 2 MG, EVERY 3 WEEKS
     Route: 042
     Dates: start: 20201211, end: 20210515
  15. ONDANSETRON [Suspect]
     Active Substance: ONDANSETRON
     Indication: Nausea
     Dosage: 4 DOSAGE FORMS, 1 X CYCLICAL
     Route: 048
     Dates: start: 20201211
  16. ATOVAQUONE [Suspect]
     Active Substance: ATOVAQUONE
     Indication: Antifungal prophylaxis
     Dosage: 1500 MG FOR 1 DAY (750 MG/5 ML), IN SINGLE-DOSE SACHET
     Route: 048

REACTIONS (1)
  - Cerebellar stroke [Not Recovered/Not Resolved]

NARRATIVE: CASE EVENT DATE: 20210128
